FAERS Safety Report 4461314-2 (Version None)
Quarter: 2004Q3

REPORT INFORMATION
  Report Type: 
  Country: None (occurrence: None)
  Receive Date: 20040928
  Receipt Date: 20040915
  Transmission Date: 20050211
  Serious: Yes (Life-Threatening, Hospitalization)
  Sender: FDA-Public Use
  Company Number: NA-GLAXOSMITHKLINE-B0346246A

PATIENT
  Age: 42 Year
  Sex: Male
  Weight: 80 kg

DRUGS (11)
  1. AUGMENTIN [Suspect]
     Indication: PROPHYLAXIS
     Dosage: 1G TWICE PER DAY
     Route: 048
     Dates: start: 20040820, end: 20040901
  2. ALLERGEX [Concomitant]
  3. ZINACEF [Concomitant]
  4. METRONIDAZOLE [Concomitant]
  5. MAXOLON [Concomitant]
  6. ZOFRAN [Concomitant]
  7. LOSEC [Concomitant]
  8. ULSANIC [Concomitant]
  9. PROPOFOL [Concomitant]
  10. SEVOFLURANE [Concomitant]
  11. LESCOL [Concomitant]

REACTIONS (9)
  - ALANINE AMINOTRANSFERASE INCREASED [None]
  - ASPARTATE AMINOTRANSFERASE INCREASED [None]
  - BLOOD ALBUMIN DECREASED [None]
  - BLOOD LACTATE DEHYDROGENASE INCREASED [None]
  - GAMMA-GLUTAMYLTRANSFERASE INCREASED [None]
  - HEPATIC ENZYME INCREASED [None]
  - HEPATITIS [None]
  - JAUNDICE [None]
  - WHITE BLOOD CELL COUNT INCREASED [None]
